FAERS Safety Report 5125763-1 (Version None)
Quarter: 2006Q4

REPORT INFORMATION
  Report Type: 
  Country: None (occurrence: None)
  Receive Date: 20061010
  Receipt Date: 20061010
  Transmission Date: 20070319
  Serious: Yes (Other)
  Sender: FDA-Public Use
  Company Number: None

PATIENT
  Sex: Female
  Weight: 70.3529 kg

DRUGS (12)
  1. CETUXIMAB 100 MG - 2 MG/ML - IMCLONE SYSTEMS / BRISTOL MYERS [Suspect]
     Indication: NEOPLASM MALIGNANT
     Dosage: 440 MG EVERY 7 DAYS IV DRIP
     Route: 041
     Dates: start: 20060802, end: 20060928
  2. PERCOCET [Concomitant]
  3. MORPHINE SULFATE [Concomitant]
  4. PREMARIN [Concomitant]
  5. LASIX [Concomitant]
  6. COREG [Concomitant]
  7. LISINOPRIL [Concomitant]
  8. DIGOXIN [Concomitant]
  9. KLOR-CON [Concomitant]
  10. ASCORBIC ACID [Concomitant]
  11. DECADRON [Concomitant]
  12. AMBIEN [Concomitant]

REACTIONS (10)
  - DISCOMFORT [None]
  - DRY SKIN [None]
  - ERYTHEMA [None]
  - GAIT DISTURBANCE [None]
  - PAIN IN EXTREMITY [None]
  - PLATELET COUNT DECREASED [None]
  - RASH [None]
  - SKIN CHAPPED [None]
  - SKIN EXFOLIATION [None]
  - SKIN FISSURES [None]
